FAERS Safety Report 10302531 (Version 1)
Quarter: 2014Q3

REPORT INFORMATION
  Report Type: Spontaneous
  Country: JP (occurrence: JP)
  Receive Date: 20140714
  Receipt Date: 20140714
  Transmission Date: 20150326
  Serious: Yes (Other)
  Sender: FDA-Public Use
  Company Number: PHHY2013JP158148

PATIENT
  Age: 93 Year
  Sex: Female

DRUGS (2)
  1. TASIGNA [Suspect]
     Active Substance: NILOTINIB
     Dosage: 150 MG, UNK
  2. TASIGNA [Suspect]
     Active Substance: NILOTINIB

REACTIONS (5)
  - Metastases to oesophagus [Unknown]
  - Metastases to lung [Unknown]
  - Metastases to lymph nodes [Unknown]
  - Thyroid cancer metastatic [Unknown]
  - Concomitant disease progression [Unknown]
